FAERS Safety Report 6898821-9 (Version None)
Quarter: 2010Q3

REPORT INFORMATION
  Report Type: 
  Country: None (occurrence: None)
  Receive Date: 20100802
  Receipt Date: 20071128
  Transmission Date: 20110219
  Serious: No
  Sender: FDA-Public Use
  Company Number: US-PFIZER INC-2007101300

PATIENT
  Sex: Female

DRUGS (2)
  1. LYRICA [Suspect]
     Indication: DEPRESSION
  2. REMERON [Suspect]
     Indication: DEPRESSION

REACTIONS (3)
  - CHILLS [None]
  - NAUSEA [None]
  - TREMOR [None]
